FAERS Safety Report 4653347-8 (Version None)
Quarter: 2005Q2

REPORT INFORMATION
  Report Type: 
  Country: None (occurrence: None)
  Receive Date: 20050504
  Receipt Date: 20050504
  Transmission Date: 20051028
  Serious: No
  Sender: FDA-Public Use
  Company Number: None

PATIENT
  Age: 53 Year
  Sex: Female
  Weight: 127.9144 kg

DRUGS (1)
  1. BUMEX [Suspect]

REACTIONS (3)
  - ABDOMINAL PAIN [None]
  - PYREXIA [None]
  - URTICARIA [None]
